FAERS Safety Report 24294374 (Version 2)
Quarter: 2024Q4

REPORT INFORMATION
  Report Type: Spontaneous
  Country: BR (occurrence: BR)
  Receive Date: 20240906
  Receipt Date: 20241204
  Transmission Date: 20250115
  Serious: Yes (Other)
  Sender: ALEXION PHARMACEUTICALS
  Company Number: 2024A200321

PATIENT
  Age: 63 Year

DRUGS (17)
  1. DAPAGLIFLOZIN [Suspect]
     Active Substance: DAPAGLIFLOZIN
     Indication: Anaemia
     Dosage: ONCE
  2. DAPAGLIFLOZIN [Suspect]
     Active Substance: DAPAGLIFLOZIN
     Dosage: ONCE
  3. DAPAGLIFLOZIN [Suspect]
     Active Substance: DAPAGLIFLOZIN
     Dosage: ONCE
  4. DAPAGLIFLOZIN [Suspect]
     Active Substance: DAPAGLIFLOZIN
     Dosage: ONCE
  5. ROSUVASTATIN [Suspect]
     Active Substance: ROSUVASTATIN
  6. ROSUVASTATIN [Suspect]
     Active Substance: ROSUVASTATIN
  7. ROSUVASTATIN [Suspect]
     Active Substance: ROSUVASTATIN
  8. ROSUVASTATIN [Suspect]
     Active Substance: ROSUVASTATIN
  9. CARVEDILOL [Concomitant]
     Active Substance: CARVEDILOL
  10. CILOSTAZOL [Concomitant]
     Active Substance: CILOSTAZOL
  11. VIE [Concomitant]
  12. FERROUS BISGLYCINATE [Concomitant]
     Active Substance: FERROUS BISGLYCINATE
     Dosage: 500 MILLIGRAM, UNK, FREQUENCY: UNK
  13. SPIRONOLACTONE [Concomitant]
     Active Substance: SPIRONOLACTONE
  14. RINARIS [Concomitant]
  15. UNOPROST [Concomitant]
  16. XARELTO [Concomitant]
     Active Substance: RIVAROXABAN
  17. LOSARTAN [Concomitant]
     Active Substance: LOSARTAN

REACTIONS (6)
  - Infarction [Unknown]
  - Cardiac failure [Unknown]
  - Hypertension [Unknown]
  - Blood pressure decreased [Recovered/Resolved]
  - Anaemia [Unknown]
  - Off label use [Not Recovered/Not Resolved]
